FAERS Safety Report 7210275-1 (Version None)
Quarter: 2011Q1

REPORT INFORMATION
  Report Type: 
  Country: None (occurrence: None)
  Receive Date: 20110105
  Receipt Date: 20101223
  Transmission Date: 20110831
  Serious: Yes (Other)
  Sender: FDA-Public Use
  Company Number: US-RB-018050-11

PATIENT
  Age: 24 Year
  Sex: Male

DRUGS (1)
  1. DELSYM ADULT GRAPE [Suspect]
     Route: 048

REACTIONS (4)
  - OVERDOSE [None]
  - CONFUSIONAL STATE [None]
  - LIMB INJURY [None]
  - TACHYCARDIA [None]
